FAERS Safety Report 6015145-2 (Version None)
Quarter: 2008Q4

REPORT INFORMATION
  Report Type: 
  Country: None (occurrence: None)
  Receive Date: 20081218
  Receipt Date: 20081201
  Transmission Date: 20090506
  Serious: Yes (Hospitalization)
  Sender: FDA-Public Use
  Company Number: 8037773

PATIENT
  Age: 47 Year
  Sex: Female
  Weight: 79.54 kg

DRUGS (11)
  1. CIMZIA [Suspect]
     Indication: CROHN'S DISEASE
     Dosage: 400 MG SC
     Route: 058
     Dates: start: 20080601
  2. PREDNISONE, 40 MG [Concomitant]
  3. ATENOLOL [Concomitant]
  4. ARMOUR THYROID, 90 MG [Concomitant]
  5. ESTRADIOL /00045404/ [Concomitant]
  6. OMEPRAZOLE [Concomitant]
  7. VANCOCIN, 125 MG [Concomitant]
  8. MULTIVITAMIN /01229101/ [Concomitant]
  9. LEXAPRO [Concomitant]
  10. LEVAQUIN [Concomitant]
  11. NAMENDA [Concomitant]

REACTIONS (4)
  - ANAEMIA [None]
  - APPENDICITIS PERFORATED [None]
  - CLOSTRIDIAL INFECTION [None]
  - DISEASE RECURRENCE [None]
